FAERS Safety Report 5235484-2 (Version None)
Quarter: 2007Q1

REPORT INFORMATION
  Report Type: 
  Country: None (occurrence: None)
  Receive Date: 20070212
  Receipt Date: 20070130
  Transmission Date: 20070707
  Serious: Yes (Congenital Anomaly, Other)
  Sender: FDA-Public Use
  Company Number: DEWYE446231JAN07

PATIENT

DRUGS (2)
  1. ENBREL [Suspect]
     Dosage: UNKNOWN
     Route: 064
     Dates: start: 20050201, end: 20050401
  2. CORTISONE ACETATE [Concomitant]
     Dosage: UNKNOWN
     Route: 064
     Dates: start: 20050101, end: 20050101

REACTIONS (1)
  - HYPOPLASTIC LEFT HEART SYNDROME [None]
